FAERS Safety Report 9477347 (Version 2)
Quarter: 2013Q3

REPORT INFORMATION
  Report Type: Report from Study
  Country: CO (occurrence: CO)
  Receive Date: 20130826
  Receipt Date: 20130904
  Transmission Date: 20140515
  Serious: Yes (Death)
  Sender: FDA-Public Use
  Company Number: CO-ROCHE-1266459

PATIENT
  Age: 73 Year
  Sex: Male

DRUGS (10)
  1. LUCENTIS [Suspect]
     Indication: PRODUCT USED FOR UNKNOWN INDICATION
     Route: 050
     Dates: start: 20130526
  2. LUCENTIS [Suspect]
     Route: 050
     Dates: start: 20130626
  3. METFORMIN [Concomitant]
  4. NIFEDIPINE [Concomitant]
  5. LOSARTAN [Concomitant]
  6. LOVASTATIN [Concomitant]
  7. LYRICA [Concomitant]
  8. SALICYLIC ACID [Concomitant]
  9. DUODART [Concomitant]
  10. INSULIN [Concomitant]

REACTIONS (1)
  - Myocardial infarction [Fatal]
